FAERS Safety Report 10589921 (Version 1)
Quarter: 2014Q4

REPORT INFORMATION
  Report Type: Spontaneous
  Country: US (occurrence: None)
  Receive Date: 20141117
  Receipt Date: 20141117
  Transmission Date: 20150529
  Serious: Yes (Other)
  Sender: FDA-Public Use
  Company Number: None

PATIENT
  Age: 61 Year
  Sex: Female

DRUGS (1)
  1. AFINITOR [Suspect]
     Active Substance: EVEROLIMUS
     Indication: BREAST CANCER
     Route: 048
     Dates: start: 20140920, end: 20141114

REACTIONS (7)
  - Rash [None]
  - Fatigue [None]
  - Furuncle [None]
  - Dyspnoea [None]
  - Dry eye [None]
  - Hypogeusia [None]
  - Myalgia [None]

NARRATIVE: CASE EVENT DATE: 20141114
